FAERS Safety Report 11046658 (Version 1)
Quarter: 2015Q2

REPORT INFORMATION
  Report Type: Spontaneous
  Country: GB (occurrence: GB)
  Receive Date: 20150420
  Receipt Date: 20150420
  Transmission Date: 20150821
  Serious: Yes (Other)
  Sender: FDA-Public Use
  Company Number: GB-ROCHE-1563463

PATIENT
  Sex: Male

DRUGS (1)
  1. ZELBORAF [Suspect]
     Active Substance: VEMURAFENIB
     Indication: PRODUCT USED FOR UNKNOWN INDICATION
     Route: 065

REACTIONS (6)
  - Aphonia [Unknown]
  - Photosensitivity reaction [Unknown]
  - Skin hypertrophy [Unknown]
  - Acne [Unknown]
  - Keratoacanthoma [Unknown]
  - Squamous cell carcinoma [Unknown]
